FAERS Safety Report 6552916-8 (Version None)
Quarter: 2010Q1

REPORT INFORMATION
  Report Type: 
  Country: None (occurrence: None)
  Receive Date: 20100122
  Receipt Date: 20100119
  Transmission Date: 20100710
  Serious: Yes (Death)
  Sender: FDA-Public Use
  Company Number: 2010SP001220

PATIENT
  Age: 84 Year
  Sex: Female

DRUGS (2)
  1. NORCURON [Suspect]
     Indication: DRUG USE FOR UNKNOWN INDICATION
     Dosage: ONCE;IV
     Route: 042
     Dates: start: 20091201
  2. CEFAMNDOLE (CEFAMANDOLE) [Suspect]
     Indication: DRUG USE FOR UNKNOWN INDICATION
     Dosage: ONCE;IV
     Route: 042
     Dates: start: 20091201

REACTIONS (1)
  - ANAPHYLACTIC SHOCK [None]
